FAERS Safety Report 8277507-2 (Version None)
Quarter: 2012Q2

REPORT INFORMATION
  Report Type: 
  Country: None (occurrence: None)
  Receive Date: 20120412
  Receipt Date: 20120410
  Transmission Date: 20120825
  Serious: Yes (Other)
  Sender: FDA-Public Use
  Company Number: US-BAYER-2012-035125

PATIENT
  Age: 69 Year
  Sex: Male
  Weight: 66 kg

DRUGS (5)
  1. ASPIRIN [Concomitant]
  2. LIPITOR [Concomitant]
  3. MULTI-VITAMIN [Concomitant]
  4. NAPROXEN (ALEVE) [Suspect]
     Dosage: 1 U, ONCE
     Route: 048
     Dates: start: 20120407, end: 20120407
  5. FISH OIL [Concomitant]

REACTIONS (1)
  - HAEMATOCHEZIA [None]
